FAERS Safety Report 6804898-9 (Version None)
Quarter: 2010Q2

REPORT INFORMATION
  Report Type: 
  Country: None (occurrence: None)
  Receive Date: 20100628
  Receipt Date: 20081008
  Transmission Date: 20101027
  Serious: No
  Sender: FDA-Public Use
  Company Number: US-PFIZER INC-2007050056

PATIENT
  Sex: Female
  Weight: 63.5 kg

DRUGS (2)
  1. XALATAN [Suspect]
     Indication: GLAUCOMA
     Route: 031
     Dates: start: 20040101
  2. XAL-EASE [Suspect]

REACTIONS (1)
  - DRUG INEFFECTIVE [None]
